FAERS Safety Report 5367355-5 (Version None)
Quarter: 2007Q2

REPORT INFORMATION
  Report Type: 
  Country: None (occurrence: None)
  Receive Date: 20070622
  Receipt Date: 20060626
  Transmission Date: 20071010
  Serious: No
  Sender: FDA-Public Use
  Company Number: US-ASTRAZENECA-2006UW13491

PATIENT
  Sex: Female

DRUGS (2)
  1. PULMICORT RESPULES [Suspect]
     Indication: BRONCHITIS
     Route: 055
  2. ALBUTEROL [Concomitant]
     Indication: BRONCHITIS

REACTIONS (1)
  - PSYCHOMOTOR HYPERACTIVITY [None]
